FAERS Safety Report 14506799 (Version 2)
Quarter: 2018Q1

REPORT INFORMATION
  Report Type: Spontaneous
  Country: JP (occurrence: JP)
  Receive Date: 20180208
  Receipt Date: 20180319
  Transmission Date: 20180509
  Serious: Yes (Life-Threatening, Other)
  Sender: FDA-Public Use
  Company Number: JP-009507513-1802JPN000287J

PATIENT
  Age: 70 Year
  Sex: Male
  Weight: 52 kg

DRUGS (6)
  1. OXINORM (OXYCODONE HYDROCHLORIDE) [Concomitant]
     Active Substance: OXYCODONE HYDROCHLORIDE
     Indication: PAIN
     Dosage: 2.5 MG, PRN
     Route: 048
     Dates: start: 20180123, end: 20180128
  2. KEYTRUDA [Suspect]
     Active Substance: PEMBROLIZUMAB
     Indication: TRANSITIONAL CELL CARCINOMA URETHRA
     Dosage: 200 MG, Q3W
     Route: 041
     Dates: start: 20180115, end: 20180115
  3. TAPENTA [Concomitant]
     Active Substance: TAPENTADOL HYDROCHLORIDE
     Indication: PAIN
     Dosage: 25 MG, BID
     Route: 048
     Dates: start: 20180123, end: 20180128
  4. DAIKENCHUTO [Concomitant]
     Active Substance: HERBALS
     Dosage: 2.5 G, TID
     Route: 048
  5. MAGNESIUM OXIDE. [Concomitant]
     Active Substance: MAGNESIUM OXIDE
     Indication: CONSTIPATION
     Dosage: 80 MG, TID
     Route: 048
     Dates: start: 20171115, end: 20180128
  6. CALONAL [Concomitant]
     Active Substance: ACETAMINOPHEN
     Indication: PAIN
     Dosage: 300 MG, PRN
     Route: 048
     Dates: start: 20180121, end: 20180128

REACTIONS (3)
  - Intestinal perforation [Not Recovered/Not Resolved]
  - Bacteraemia [Unknown]
  - Necrotising fasciitis [Unknown]

NARRATIVE: CASE EVENT DATE: 20180127
